FAERS Safety Report 25940287 (Version 1)
Quarter: 2025Q4

REPORT INFORMATION
  Report Type: Spontaneous
  Country: EU (occurrence: EU)
  Receive Date: 20251020
  Receipt Date: 20251020
  Transmission Date: 20260117
  Serious: Yes (Disabling)
  Sender: MYLAN
  Company Number: None

PATIENT
  Age: 47 Year
  Sex: Female
  Weight: 59 kg

DRUGS (4)
  1. GABAPENTIN [Suspect]
     Active Substance: GABAPENTIN
     Indication: Fibromyalgia
     Dosage: 900 MILLIGRAM, QD
     Dates: start: 20221006
  2. GABAPENTIN [Suspect]
     Active Substance: GABAPENTIN
     Dosage: 900 MILLIGRAM, QD
     Route: 048
     Dates: start: 20221006
  3. GABAPENTIN [Suspect]
     Active Substance: GABAPENTIN
     Dosage: 900 MILLIGRAM, QD
     Route: 048
     Dates: start: 20221006
  4. GABAPENTIN [Suspect]
     Active Substance: GABAPENTIN
     Dosage: 900 MILLIGRAM, QD
     Dates: start: 20221006

REACTIONS (4)
  - Hypoaesthesia [Not Recovered/Not Resolved]
  - Visual impairment [Not Recovered/Not Resolved]
  - Headache [Not Recovered/Not Resolved]
  - Vertigo [Not Recovered/Not Resolved]

NARRATIVE: CASE EVENT DATE: 20250926
